FAERS Safety Report 17749715 (Version 1)
Quarter: 2020Q2

REPORT INFORMATION
  Report Type: Spontaneous
  Country: FR (occurrence: FR)
  Receive Date: 20200506
  Receipt Date: 20200506
  Transmission Date: 20200714
  Serious: Yes (Other)
  Sender: FDA-Public Use
  Company Number: FR-SA-2020SA115306

PATIENT
  Age: 70 Year
  Sex: Male

DRUGS (1)
  1. ZALTRAP [Suspect]
     Active Substance: ZIV-AFLIBERCEPT
     Dosage: UNK
     Route: 065

REACTIONS (2)
  - Rectal haemorrhage [Unknown]
  - Diarrhoea haemorrhagic [Unknown]
